FAERS Safety Report 12854390 (Version 1)
Quarter: 2016Q4

REPORT INFORMATION
  Report Type: Spontaneous
  Country: US (occurrence: US)
  Receive Date: 20161017
  Receipt Date: 20161017
  Transmission Date: 20170207
  Serious: No
  Sender: FDA-Public Use
  Company Number: US-GALDERMA-US16004501

PATIENT
  Age: 26 Year
  Sex: Female
  Weight: 81.72 kg

DRUGS (5)
  1. CETAPHIL [Concomitant]
     Active Substance: AVOBENZONE\OCTOCRYLENE\TRICLOSAN
     Route: 061
     Dates: start: 201606
  2. SULFACLEANSE [Concomitant]
     Route: 061
     Dates: start: 2012
  3. SOOLANTRA [Suspect]
     Active Substance: IVERMECTIN
     Indication: ROSACEA
  4. CETAPHIL DAILY FACIAL MOISTURIZER WITH SUNSCREEN SPF50+ [Concomitant]
     Route: 061
     Dates: start: 201606
  5. SOOLANTRA [Suspect]
     Active Substance: IVERMECTIN
     Indication: SEBORRHOEIC DERMATITIS
     Dosage: 1%
     Route: 061
     Dates: start: 20160623, end: 20160628

REACTIONS (5)
  - Pruritus [Recovered/Resolved]
  - Dry skin [Recovered/Resolved]
  - Rash papular [Recovered/Resolved]
  - Skin warm [Recovered/Resolved]
  - Erythema [Recovered/Resolved]

NARRATIVE: CASE EVENT DATE: 20160628
